FAERS Safety Report 14571277 (Version 1)
Quarter: 2018Q1

REPORT INFORMATION
  Report Type: Report from Study
  Country: CA (occurrence: CA)
  Receive Date: 20180226
  Receipt Date: 20180226
  Transmission Date: 20180509
  Serious: Yes (Death, Other)
  Sender: FDA-Public Use
  Company Number: PHHY2015CA037607

PATIENT
  Age: 49 Year
  Sex: Male

DRUGS (4)
  1. SANDOSTATIN LAR DEPOT [Suspect]
     Active Substance: OCTREOTIDE ACETATE
     Dosage: 40 MG, QMO
     Route: 030
  2. SANDOSTATIN [Suspect]
     Active Substance: OCTREOTIDE ACETATE
     Indication: NEUROENDOCRINE TUMOUR
     Dosage: 150 UG, TID (FOR 1 MONTH)
     Route: 058
     Dates: start: 20150310, end: 201504
  3. SANDOSTATIN LAR DEPOT [Suspect]
     Active Substance: OCTREOTIDE ACETATE
     Indication: NEUROENDOCRINE TUMOUR
     Dosage: 30 MG, QMO
     Route: 030
     Dates: start: 20150325
  4. SANDOSTATIN LAR DEPOT [Suspect]
     Active Substance: OCTREOTIDE ACETATE
     Dosage: 20 MG, QMO
     Route: 030

REACTIONS (8)
  - Drug dispensing error [Unknown]
  - Liver disorder [Unknown]
  - Injection site pain [Unknown]
  - Metastases to liver [Unknown]
  - Death [Fatal]
  - Malignant neoplasm progression [Unknown]
  - Blood pressure increased [Unknown]
  - Abdominal pain [Unknown]

NARRATIVE: CASE EVENT DATE: 20150325
